FAERS Safety Report 4565179-X (Version None)
Quarter: 2005Q1

REPORT INFORMATION
  Report Type: 
  Country: None (occurrence: None)
  Receive Date: 20050127
  Receipt Date: 20050127
  Transmission Date: 20050727
  Serious: No
  Sender: FDA-Public Use
  Company Number: None

PATIENT
  Age: 16 Year
  Sex: Female
  Weight: 43.9989 kg

DRUGS (1)
  1. SERTRALINE [Suspect]
     Dosage: 50 MG Q AM   PO   (DURATION: 1 DOSE)
     Route: 048

REACTIONS (4)
  - BLOOD PRESSURE DECREASED [None]
  - DIZZINESS [None]
  - HEART RATE INCREASED [None]
  - VISION BLURRED [None]
